FAERS Safety Report 4870593-9 (Version None)
Quarter: 2006Q1

REPORT INFORMATION
  Report Type: 
  Country: None (occurrence: None)
  Receive Date: 20060103
  Receipt Date: 20051223
  Transmission Date: 20060701
  Serious: Yes (Hospitalization)
  Sender: FDA-Public Use
  Company Number: PHHO2005US20032

PATIENT
  Age: 81 Year
  Sex: Female
  Weight: 64 kg

DRUGS (2)
  1. ICL670A [Suspect]
     Indication: BLOOD IRON INCREASED
     Dosage: 1250 MG, QD
     Route: 048
     Dates: start: 20051129
  2. ACE INHIBITOR NOS [Concomitant]

REACTIONS (8)
  - ACUTE PRERENAL FAILURE [None]
  - CARDIAC FAILURE CONGESTIVE [None]
  - DIALYSIS [None]
  - EJECTION FRACTION DECREASED [None]
  - FLUID RETENTION [None]
  - OEDEMA [None]
  - ORTHOSTATIC HYPOTENSION [None]
  - RENAL IMPAIRMENT [None]
